FAERS Safety Report 12903627 (Version 22)
Quarter: 2018Q3

REPORT INFORMATION
  Report Type: Report from Study
  Country: CA (occurrence: CA)
  Receive Date: 20161102
  Receipt Date: 20180924
  Transmission Date: 20181010
  Serious: Yes (Hospitalization, Other)
  Sender: FDA-Public Use
  Company Number: CA-TAKEDA-2016TUS013780

PATIENT
  Age: 34 Year
  Sex: Female

DRUGS (7)
  1. VEDOLIZUMAB [Suspect]
     Active Substance: VEDOLIZUMAB
     Dosage: 300 MG, Q4WEEKS
     Route: 042
     Dates: start: 20161123
  2. PREVACID [Concomitant]
     Active Substance: LANSOPRAZOLE
     Indication: GASTROOESOPHAGEAL REFLUX DISEASE
     Dosage: UNK
  3. CELEXA [Concomitant]
     Active Substance: CITALOPRAM HYDROBROMIDE
     Indication: POST-TRAUMATIC STRESS DISORDER
     Dosage: UNK
  4. METHYLPREDNISOLONE. [Concomitant]
     Active Substance: METHYLPREDNISOLONE
     Indication: PREMEDICATION
     Dosage: 80 MG, UNK
     Route: 042
  5. DIPHENHYDRAMINE. [Concomitant]
     Active Substance: DIPHENHYDRAMINE
     Indication: PREMEDICATION
     Dosage: 50 MG, UNK
     Route: 048
  6. VEDOLIZUMAB [Suspect]
     Active Substance: VEDOLIZUMAB
     Indication: CROHN^S DISEASE
     Dosage: 300 MG, UNK
     Route: 042
     Dates: start: 20160720
  7. ACETAMINOPHEN. [Concomitant]
     Active Substance: ACETAMINOPHEN
     Indication: PREMEDICATION
     Dosage: 650 MG, UNK
     Route: 048

REACTIONS (79)
  - Complication associated with device [Recovered/Resolved]
  - Productive cough [Not Recovered/Not Resolved]
  - Palpitations [Unknown]
  - Headache [Recovered/Resolved]
  - Migraine [Unknown]
  - Feeling abnormal [Unknown]
  - Hypoaesthesia [Unknown]
  - Abdominal pain [Not Recovered/Not Resolved]
  - Hyperhidrosis [Unknown]
  - Ear pain [Unknown]
  - Off label use [Unknown]
  - Diarrhoea [Not Recovered/Not Resolved]
  - Osteoarthritis [Unknown]
  - Urethral disorder [Unknown]
  - Vesicoureteric reflux [Unknown]
  - Stress [Unknown]
  - Hypotension [Unknown]
  - Gait disturbance [Unknown]
  - Ulcer [Unknown]
  - Haematochezia [Unknown]
  - Infusion site haematoma [Unknown]
  - Muscle strain [Not Recovered/Not Resolved]
  - Hot flush [Unknown]
  - Cystitis [Unknown]
  - Micturition urgency [Not Recovered/Not Resolved]
  - Impaired gastric emptying [Unknown]
  - Inflammation [Unknown]
  - Post-traumatic neck syndrome [Unknown]
  - Condition aggravated [Not Recovered/Not Resolved]
  - Rash [Not Recovered/Not Resolved]
  - Therapeutic reaction time decreased [Unknown]
  - Nasopharyngitis [Unknown]
  - Road traffic accident [Unknown]
  - Visual impairment [Unknown]
  - Emotional disorder [Unknown]
  - Stomatitis [Not Recovered/Not Resolved]
  - Eye pain [Unknown]
  - Post procedural haemorrhage [Unknown]
  - Device related infection [Recovered/Resolved]
  - Infusion site pain [Unknown]
  - Rash pruritic [Not Recovered/Not Resolved]
  - Crohn^s disease [Unknown]
  - Vision blurred [Unknown]
  - Frequent bowel movements [Not Recovered/Not Resolved]
  - Mucous stools [Unknown]
  - Diplopia [Unknown]
  - Urinary tract infection [Not Recovered/Not Resolved]
  - Asthenia [Recovered/Resolved]
  - Arthropathy [Not Recovered/Not Resolved]
  - Fatigue [Recovered/Resolved]
  - Lower respiratory tract infection [Not Recovered/Not Resolved]
  - Constipation [Unknown]
  - Sinusitis [Recovered/Resolved]
  - Ovarian cyst ruptured [Not Recovered/Not Resolved]
  - Surgery [Unknown]
  - Dysuria [Not Recovered/Not Resolved]
  - Neck mass [Not Recovered/Not Resolved]
  - Feeling abnormal [Unknown]
  - Amenorrhoea [Unknown]
  - Faecal calprotectin increased [Not Recovered/Not Resolved]
  - Nausea [Not Recovered/Not Resolved]
  - Mouth ulceration [Unknown]
  - Chills [Unknown]
  - Dizziness [Unknown]
  - Throat irritation [Not Recovered/Not Resolved]
  - Vomiting [Not Recovered/Not Resolved]
  - Palatal swelling [Recovered/Resolved]
  - Clumsiness [Not Recovered/Not Resolved]
  - Heart rate increased [Unknown]
  - Pelvic haemorrhage [Not Recovered/Not Resolved]
  - Syncope [Unknown]
  - Pain [Recovered/Resolved]
  - Somnolence [Not Recovered/Not Resolved]
  - Pain in extremity [Unknown]
  - Arthralgia [Unknown]
  - Intestinal obstruction [Unknown]
  - Pollakiuria [Not Recovered/Not Resolved]
  - Duodenitis [Not Recovered/Not Resolved]
  - Gastritis [Not Recovered/Not Resolved]

NARRATIVE: CASE EVENT DATE: 2016
